FAERS Safety Report 25837895 (Version 1)
Quarter: 2025Q3

REPORT INFORMATION
  Report Type: Spontaneous
  Country: TW (occurrence: TW)
  Receive Date: 20250923
  Receipt Date: 20250923
  Transmission Date: 20251021
  Serious: Yes (Other)
  Sender: ABBVIE
  Company Number: TW-PFIZER INC-PV202500112073

PATIENT
  Age: 62 Year
  Sex: Female
  Weight: 51.7 kg

DRUGS (33)
  1. AVIBACTAM SODIUM\CEFTAZIDIME [Suspect]
     Active Substance: AVIBACTAM SODIUM\CEFTAZIDIME
     Indication: Pneumonia
     Route: 041
     Dates: start: 20250516, end: 20250522
  2. DIPHENHYDRAMINE HYDROCHLORIDE [Concomitant]
     Active Substance: DIPHENHYDRAMINE HYDROCHLORIDE
     Indication: Prophylaxis
     Dates: start: 20250509
  3. Dorison (Dexamethasone) [Concomitant]
     Indication: Plasma cell myeloma
     Dosage: 5 DF, 1X/DAY
     Route: 048
     Dates: start: 20250510, end: 20250513
  4. RIVOTRIL [Concomitant]
     Active Substance: CLONAZEPAM
     Indication: Anxiety
     Dosage: 1 DF, 1X/DAY
     Route: 048
     Dates: start: 20250510, end: 20250513
  5. PRIMPERAN [Concomitant]
     Active Substance: METOCLOPRAMIDE HYDROCHLORIDE
     Indication: Gastrointestinal disorder
     Route: 042
     Dates: start: 20250517
  6. CARBIMAZOLE [Suspect]
     Active Substance: CARBIMAZOLE
     Indication: Hyperthyroidism
     Dosage: 1 DF, 2X/DAY(ONCE EVERY 0.5 DAY)
     Route: 048
     Dates: start: 20250513, end: 20250523
  7. MORPHINE SULFATE [Concomitant]
     Active Substance: MORPHINE SULFATE
     Indication: Pain management
     Route: 048
     Dates: start: 20250516, end: 20250519
  8. Siruta [Concomitant]
     Indication: Mucolytic treatment
     Dosage: 1.0 DF, 4X/DAY
     Route: 055
     Dates: start: 20250515, end: 20250521
  9. Sennapur [Concomitant]
     Indication: Constipation
     Dosage: 2 DF, 1X/DAY
     Route: 048
     Dates: start: 20250512
  10. VALTREX [Concomitant]
     Active Substance: VALACYCLOVIR HYDROCHLORIDE
     Indication: Antiviral prophylaxis
     Route: 048
     Dates: start: 20250513
  11. BARACLUDE [Concomitant]
     Active Substance: ENTECAVIR
     Indication: Prophylaxis
     Route: 048
     Dates: start: 20250512
  12. DEXILANT [Concomitant]
     Active Substance: DEXLANSOPRAZOLE
     Indication: Gastrooesophageal reflux disease
     Dosage: 1 DF, 1X/DAY
     Route: 048
     Dates: start: 20250509
  13. SODIUM BICARBONATE [Concomitant]
     Active Substance: SODIUM BICARBONATE
     Indication: Metabolic acidosis
     Route: 048
     Dates: start: 20250516, end: 20250518
  14. Corol oral rinse [Concomitant]
     Indication: Anti-infective therapy
     Route: 050
     Dates: start: 20250509
  15. SOLU-CORTEF [Concomitant]
     Active Substance: HYDROCORTISONE SODIUM SUCCINATE
     Indication: Adrenal insufficiency
     Dosage: 50.0 MG, 4X/DAY(ONCE EVERY 6.0 HOURS)
     Route: 042
     Dates: start: 20250509, end: 20250511
  16. Supecef [Concomitant]
     Indication: Pneumonia
  17. Supecef [Concomitant]
     Indication: Pneumonia
     Dosage: 2000 MG, 1X/DAY
     Route: 042
     Dates: start: 20250509, end: 20250516
  18. VELCADE [Concomitant]
     Active Substance: BORTEZOMIB
     Indication: Plasma cell myeloma
     Dosage: 2.1 MG, 1X/DAY
     Route: 058
     Dates: start: 20250513, end: 20250513
  19. FENTANYL CITRATE [Concomitant]
     Active Substance: FENTANYL CITRATE
     Indication: Pain management
     Dosage: 0.5 MG, 1X/DAY
     Route: 041
     Dates: start: 20250509, end: 20250513
  20. LIVALO [Suspect]
     Active Substance: PITAVASTATIN CALCIUM
     Indication: Hyperlipidaemia
     Dosage: 0.5 DF, 1X/DAY
     Route: 048
     Dates: start: 20250509, end: 20250522
  21. LEVOPHED [Concomitant]
     Active Substance: NOREPINEPHRINE BITARTRATE
     Indication: Shock
     Dosage: 16 MG, 1X/DAY
     Route: 041
     Dates: start: 20250509, end: 20250511
  22. Musco [Concomitant]
     Indication: Mucolytic treatment
     Route: 048
     Dates: start: 20250511, end: 20250521
  23. DOXAZOSIN MESYLATE [Concomitant]
     Active Substance: DOXAZOSIN MESYLATE
     Indication: Hypertension
     Dosage: 1 DF, 2X/DAY
     Route: 048
     Dates: start: 20250513, end: 20250517
  24. Acetal [Concomitant]
     Indication: Pyrexia
     Route: 048
     Dates: start: 20250509
  25. BISACODYL [Concomitant]
     Active Substance: BISACODYL
     Indication: Constipation
     Route: 054
     Dates: start: 20250512
  26. XANAX [Concomitant]
     Active Substance: ALPRAZOLAM
     Indication: Anxiety
     Dosage: 0.5 DF, 1X/DAY
     Route: 048
     Dates: start: 20250513, end: 20250517
  27. CORDARONE [Suspect]
     Active Substance: AMIODARONE HYDROCHLORIDE
     Indication: Atrial fibrillation
     Dosage: 900 MG, 1X/DAY
     Route: 041
     Dates: start: 20250512, end: 20250522
  28. MORPHINE HYDROCHLORIDE [Concomitant]
     Active Substance: MORPHINE HYDROCHLORIDE
     Indication: Pain management
     Route: 042
     Dates: start: 20250513, end: 20250518
  29. Thado [Concomitant]
     Indication: Plasma cell myeloma
     Dosage: 2 DF, 1X/DAY
     Route: 048
     Dates: start: 20250510
  30. NORVASC [Concomitant]
     Active Substance: AMLODIPINE BESYLATE
     Indication: Hypertension
     Dosage: 1 DF, 1X/DAY
     Route: 048
     Dates: start: 20250514, end: 20250517
  31. PROPOFOL [Concomitant]
     Active Substance: PROPOFOL
     Indication: Sedation
     Dosage: 600.0 MG, 1X/DAY
     Route: 041
     Dates: start: 20250509, end: 20250513
  32. ATROVENT [Concomitant]
     Active Substance: IPRATROPIUM BROMIDE
     Indication: Lung disorder
     Dosage: 1.0 DF, 4X/DAY
     Route: 055
     Dates: start: 20250515, end: 20250521
  33. BISOPROLOL FUMARATE [Concomitant]
     Active Substance: BISOPROLOL FUMARATE
     Indication: Tachycardia
     Dosage: 1 DF, 1X/DAY
     Route: 048
     Dates: start: 20250514, end: 20250517

REACTIONS (3)
  - Eosinophil count increased [Recovering/Resolving]
  - Rash maculo-papular [Recovered/Resolved]
  - Hepatic enzyme increased [Recovered/Resolved]

NARRATIVE: CASE EVENT DATE: 20250517
